FAERS Safety Report 6824620-X (Version None)
Quarter: 2010Q3

REPORT INFORMATION
  Report Type: 
  Country: None (occurrence: None)
  Receive Date: 20100708
  Receipt Date: 20061106
  Transmission Date: 20110219
  Serious: No
  Sender: FDA-Public Use
  Company Number: US-PFIZER INC-2006139767

PATIENT
  Sex: Female
  Weight: 72.57 kg

DRUGS (2)
  1. CHANTIX [Suspect]
     Indication: SMOKING CESSATION THERAPY
     Dates: start: 20061005
  2. ALL OTHER THERAPEUTIC PRODUCTS [Concomitant]
     Indication: SINUS CONGESTION

REACTIONS (2)
  - NERVE COMPRESSION [None]
  - SINUS CONGESTION [None]
